FAERS Safety Report 24210379 (Version 2)
Quarter: 2024Q3

REPORT INFORMATION
  Report Type: Report from Study
  Country: CA (occurrence: CA)
  Receive Date: 20240814
  Receipt Date: 20240911
  Transmission Date: 20241016
  Serious: Yes (Life-Threatening)
  Sender: CSL BEHRING
  Company Number: CA-BEH-2024176997

PATIENT
  Sex: Male
  Weight: 68 kg

DRUGS (6)
  1. HIZENTRA [Suspect]
     Active Substance: HUMAN IMMUNOGLOBULIN G
     Indication: Primary immunodeficiency syndrome
     Dosage: 7 G, QW
     Route: 065
     Dates: start: 20211110
  2. PREDNISONE [Concomitant]
     Active Substance: PREDNISONE
  3. VENTOLIN [Concomitant]
     Active Substance: ALBUTEROL SULFATE
  4. SPIRIVA [Concomitant]
     Active Substance: TIOTROPIUM BROMIDE MONOHYDRATE
  5. UNSPECIFIED INGREDIENT [Concomitant]
     Active Substance: UNSPECIFIED INGREDIENT
  6. D1000 [Concomitant]

REACTIONS (1)
  - Therapy cessation [Unknown]
